FAERS Safety Report 13664500 (Version 2)
Quarter: 2017Q3

REPORT INFORMATION
  Report Type: Spontaneous
  Country: US (occurrence: US)
  Receive Date: 20170619
  Receipt Date: 20170705
  Transmission Date: 20171127
  Serious: Yes (Other)
  Sender: FDA-Public Use
  Company Number: US-PFIZER INC-2017266484

PATIENT

DRUGS (2)
  1. HALOPERIDOL. [Suspect]
     Active Substance: HALOPERIDOL
     Dosage: 5 MG, UNK
  2. FLUCONAZOLE. [Suspect]
     Active Substance: FLUCONAZOLE
     Dosage: 200 MG, UNK
     Route: 048

REACTIONS (15)
  - Anaphylactic reaction [Unknown]
  - Serum sickness [Unknown]
  - Pruritus [Unknown]
  - Skin tightness [Unknown]
  - Pyrexia [Unknown]
  - Syncope [Unknown]
  - Rhabdomyolysis [Unknown]
  - Palpitations [Unknown]
  - Pharyngeal disorder [Unknown]
  - Oral discomfort [Unknown]
  - Mass [Unknown]
  - Rash [Unknown]
  - Asthenia [Unknown]
  - Urticaria [Unknown]
  - Angioedema [Unknown]
